FAERS Safety Report 18758677 (Version 1)
Quarter: 2021Q1

REPORT INFORMATION
  Report Type: Spontaneous
  Country: CN (occurrence: CN)
  Receive Date: 20210120
  Receipt Date: 20210120
  Transmission Date: 20210419
  Serious: No
  Sender: FDA-Public Use
  Company Number: CN-JNJFOC-20210119391

PATIENT
  Age: 50 Year
  Sex: Male
  Weight: 70 kg

DRUGS (3)
  1. NESINA [Concomitant]
     Active Substance: ALOGLIPTIN BENZOATE
  2. INVOKANA [Suspect]
     Active Substance: CANAGLIFLOZIN
     Indication: DIABETIC NEUROPATHY
     Route: 048
     Dates: start: 20200825, end: 20201218
  3. INVOKANA [Suspect]
     Active Substance: CANAGLIFLOZIN
     Route: 048

REACTIONS (1)
  - Urine ketone body [Recovering/Resolving]

NARRATIVE: CASE EVENT DATE: 20201212
